FAERS Safety Report 23167035 (Version 2)
Quarter: 2023Q4

REPORT INFORMATION
  Report Type: Spontaneous
  Country: US (occurrence: US)
  Receive Date: 20231109
  Receipt Date: 20231120
  Transmission Date: 20240110
  Serious: Yes (Hospitalization)
  Sender: FDA-Public Use
  Company Number: US-PFIZER INC-202300356886

PATIENT
  Age: 71 Year
  Sex: Male
  Weight: 102.06 kg

DRUGS (1)
  1. VYNDAMAX [Suspect]
     Active Substance: TAFAMIDIS
     Indication: Prophylaxis
     Dosage: UNK, 1X/DAY
     Route: 048
     Dates: start: 202310

REACTIONS (2)
  - Cardiac operation [Unknown]
  - Memory impairment [Unknown]

NARRATIVE: CASE EVENT DATE: 20230101
